FAERS Safety Report 17293099 (Version 1)
Quarter: 2020Q1

REPORT INFORMATION
  Report Type: Spontaneous
  Country: PL (occurrence: PL)
  Receive Date: 20200121
  Receipt Date: 20200121
  Transmission Date: 20200409
  Serious: Yes (Other)
  Sender: FDA-Public Use
  Company Number: PL-TEVA-2020-PL-1170206

PATIENT
  Age: 3 Year
  Sex: Male
  Weight: 13.8 kg

DRUGS (5)
  1. KLACID [Concomitant]
     Active Substance: CLARITHROMYCIN
     Indication: INFECTION
     Dosage: 2.5 ML PER EVERY 12 HOURS
     Route: 048
     Dates: start: 20160707, end: 20160812
  2. ZYRTEC [Concomitant]
     Active Substance: CETIRIZINE HYDROCHLORIDE
     Indication: SUPPORTIVE CARE
     Dosage: 5 MG PER DAY
     Route: 048
  3. OSPEN 750 750MG/5ML [Concomitant]
     Indication: SUPPORTIVE CARE
     Dosage: 4 ML PER EVERY 12 HOURS
     Route: 048
  4. ACTAVEN [Suspect]
     Active Substance: ISOTRETINOIN
     Indication: NEUROBLASTOMA
     Dosage: DOSE: 60+40 MG
     Route: 048
     Dates: start: 20160808, end: 20160821
  5. BISEPTOL 480 [Concomitant]
     Indication: SUPPORTIVE CARE
     Dosage: DOSE: 1/2 OF TABLET
     Route: 048

REACTIONS (3)
  - Off label use [Recovered/Resolved]
  - Skin lesion [Recovered/Resolved]
  - Bone lesion [Recovered/Resolved]

NARRATIVE: CASE EVENT DATE: 20160808
